FAERS Safety Report 11009219 (Version 3)
Quarter: 2015Q2

REPORT INFORMATION
  Report Type: Spontaneous
  Country: US (occurrence: US)
  Receive Date: 20150410
  Receipt Date: 20150504
  Transmission Date: 20150821
  Serious: No
  Sender: FDA-Public Use
  Company Number: US-PFIZER INC-2015119807

PATIENT
  Age: 44 Year
  Sex: Female

DRUGS (1)
  1. SUTENT [Suspect]
     Active Substance: SUNITINIB MALATE
     Indication: HAEMANGIOPERICYTOMA
     Dosage: UNK, DAILY
     Dates: start: 20150201, end: 20150403

REACTIONS (13)
  - Haemangiopericytoma [Unknown]
  - Dry skin [Unknown]
  - Dry mouth [Unknown]
  - Skin exfoliation [Unknown]
  - Product use issue [Unknown]
  - Palmar-plantar erythrodysaesthesia syndrome [Unknown]
  - Fatigue [Unknown]
  - Hair colour changes [Unknown]
  - Diarrhoea [Unknown]
  - Blister [Unknown]
  - Constipation [Unknown]
  - Oral pain [Unknown]
  - Disease progression [Unknown]
